FAERS Safety Report 23089336 (Version 1)
Quarter: 2023Q4

REPORT INFORMATION
  Report Type: Spontaneous
  Country: DE (occurrence: DE)
  Receive Date: 20231020
  Receipt Date: 20231020
  Transmission Date: 20240109
  Serious: Yes (Congenital Anomaly, Other)
  Sender: FDA-Public Use
  Company Number: None

PATIENT
  Age: 1 Day
  Sex: Female
  Weight: 3 kg

DRUGS (3)
  1. LAMOTRIGINE [Suspect]
     Active Substance: LAMOTRIGINE
     Indication: Product used for unknown indication
     Dosage: MOTHER^S DOSE: 350 MG/D
     Route: 064
  2. BRIVARACETAM [Suspect]
     Active Substance: BRIVARACETAM
     Indication: Product used for unknown indication
     Dosage: MOTHER^S DOSE: 125 MG/D
     Route: 064
  3. FOLSURE [Concomitant]
     Indication: Product used for unknown indication
     Dosage: MOTHER^S DOSE: ONCE A WEEK UNTIL GW 4, THE EVERYDAY 5 MG
     Route: 064

REACTIONS (3)
  - Atrial septal defect [Recovered/Resolved]
  - Foetal exposure during pregnancy [Unknown]
  - Cardiac septal defect [Not Recovered/Not Resolved]

NARRATIVE: CASE EVENT DATE: 20230201
